FAERS Safety Report 8431139-1 (Version None)
Quarter: 2012Q2

REPORT INFORMATION
  Report Type: 
  Country: None (occurrence: None)
  Receive Date: 20120612
  Receipt Date: 20120522
  Transmission Date: 20120825
  Serious: Yes (Hospitalization)
  Sender: FDA-Public Use
  Company Number: JP-MERCK-1205USA02248

PATIENT
  Age: 38 Year
  Sex: Female
  Weight: 98 kg

DRUGS (18)
  1. HYDROCORTISONE [Concomitant]
     Route: 065
  2. DECADRON [Suspect]
     Route: 065
  3. FUROSEMIDE [Concomitant]
     Route: 048
  4. DECADRON [Suspect]
     Route: 065
  5. DECADRON [Suspect]
     Route: 065
  6. DECADRON [Suspect]
     Route: 065
  7. DECADRON [Suspect]
     Route: 065
  8. VOGLIBOSE [Concomitant]
     Route: 065
  9. DECADRON [Suspect]
     Route: 065
  10. DECADRON [Suspect]
     Route: 065
  11. DECADRON [Suspect]
     Route: 065
  12. DECADRON [Suspect]
     Route: 065
  13. GLIMEPIRIDE [Concomitant]
     Indication: BLOOD GLUCOSE
     Route: 048
  14. DECADRON [Suspect]
     Route: 065
  15. DECADRON [Suspect]
     Indication: DIABETES MELLITUS MANAGEMENT
     Route: 065
  16. SPIRONOLACTONE [Concomitant]
     Indication: OEDEMA PERIPHERAL
     Route: 048
  17. DECADRON [Suspect]
     Indication: 21-HYDROXYLASE DEFICIENCY
     Route: 065
  18. PREDNISOLONE [Suspect]
     Indication: 21-HYDROXYLASE DEFICIENCY
     Route: 065

REACTIONS (5)
  - DIABETES MELLITUS [None]
  - OBESITY [None]
  - CUSHING'S SYNDROME [None]
  - OVERDOSE [None]
  - INAPPROPRIATE SCHEDULE OF DRUG ADMINISTRATION [None]
